FAERS Safety Report 10170100 (Version 2)
Quarter: 2014Q2

REPORT INFORMATION
  Report Type: Spontaneous
  Country: US (occurrence: US)
  Receive Date: 20140513
  Receipt Date: 20140528
  Transmission Date: 20141212
  Serious: Yes (Hospitalization)
  Sender: FDA-Public Use
  Company Number: US-GLAXOSMITHKLINE-A1072313A

PATIENT
  Age: 64 Year
  Sex: Female

DRUGS (10)
  1. ADVAIR [Suspect]
     Indication: ASTHMA
     Dosage: 1PUFF TWICE PER DAY
     Route: 055
  2. INHALER [Concomitant]
  3. SINGULAIR [Concomitant]
  4. VANTIN [Concomitant]
  5. PROTONIX [Concomitant]
  6. GAMMA GLOBULIN [Concomitant]
  7. CYTOMEL [Concomitant]
  8. UNKNOWN MEDICATION [Concomitant]
  9. ALLEGRA D [Concomitant]
  10. NASAL SPRAY [Concomitant]

REACTIONS (6)
  - Bronchiectasis [Unknown]
  - Pulmonary fibrosis [Unknown]
  - Pneumonia [Unknown]
  - Dysphonia [Recovered/Resolved]
  - Knee arthroplasty [Unknown]
  - Drug administration error [Unknown]
